FAERS Safety Report 14931279 (Version 2)
Quarter: 2018Q2

REPORT INFORMATION
  Report Type: Spontaneous
  Country: US (occurrence: US)
  Receive Date: 20180524
  Receipt Date: 20180613
  Transmission Date: 20180711
  Serious: Yes (Other)
  Sender: FDA-Public Use
  Company Number: US-ACCORD-067380

PATIENT
  Age: 57 Year
  Sex: Female
  Weight: 81.65 kg

DRUGS (1)
  1. AMITRIPTYLINE ACCORD [Suspect]
     Active Substance: AMITRIPTYLINE
     Indication: FIBROMYALGIA
     Dosage: STRENGTH: 25 MG, DOSE: 2 TABS (50MG) QHS
     Route: 048
     Dates: start: 20180409, end: 20180509

REACTIONS (3)
  - Product substitution issue [Unknown]
  - Off label use [Unknown]
  - Hypoaesthesia oral [Unknown]

NARRATIVE: CASE EVENT DATE: 20180508
